FAERS Safety Report 16117366 (Version 2)
Quarter: 2019Q1

REPORT INFORMATION
  Report Type: Report from Study
  Country: US (occurrence: US)
  Receive Date: 20190326
  Receipt Date: 20190329
  Transmission Date: 20190418
  Serious: Yes (Hospitalization, Other)
  Sender: FDA-Public Use
  Company Number: US-AMGEN-USASL2019044498

PATIENT
  Age: 58 Year
  Sex: Male

DRUGS (2)
  1. ENBREL [Suspect]
     Active Substance: ETANERCEPT
     Indication: PSORIASIS
     Dosage: 50 MILLIGRAM, QWK
     Route: 058
  2. ENBREL [Suspect]
     Active Substance: ETANERCEPT
     Indication: PSORIATIC ARTHROPATHY

REACTIONS (6)
  - Dizziness [Unknown]
  - Dysstasia [Unknown]
  - Carotid artery stent insertion [Unknown]
  - Neoplasm malignant [Recovered/Resolved]
  - Visual impairment [Unknown]
  - Product storage error [Unknown]

NARRATIVE: CASE EVENT DATE: 20190228
